FAERS Safety Report 26086557 (Version 1)
Quarter: 2025Q4

REPORT INFORMATION
  Report Type: Spontaneous
  Country: US (occurrence: US)
  Receive Date: 20251125
  Receipt Date: 20251125
  Transmission Date: 20260117
  Serious: No
  Sender: TEVA
  Company Number: US-TEVA-VS-3394369

PATIENT
  Age: 26 Year
  Sex: Female

DRUGS (1)
  1. ADDERALL [Suspect]
     Active Substance: AMPHETAMINE ASPARTATE\AMPHETAMINE SULFATE\DEXTROAMPHETAMINE SACCHARATE\DEXTROAMPHETAMINE SULFATE
     Indication: Product used for unknown indication
     Route: 065
     Dates: start: 20200101

REACTIONS (5)
  - Drug ineffective [Unknown]
  - Brain fog [Unknown]
  - Somnolence [Unknown]
  - Fatigue [Unknown]
  - Loss of personal independence in daily activities [Unknown]
